FAERS Safety Report 6055221-1 (Version None)
Quarter: 2009Q1

REPORT INFORMATION
  Report Type: 
  Country: None (occurrence: None)
  Receive Date: 20090122
  Receipt Date: 20090107
  Transmission Date: 20090719
  Serious: Yes (Other)
  Sender: FDA-Public Use
  Company Number: 235337J08USA

PATIENT
  Age: 64 Year
  Sex: Male
  Weight: 135 kg

DRUGS (6)
  1. REBIF [Suspect]
     Indication: MULTIPLE SCLEROSIS
     Dosage: 44 MCG, 3 IN 1 WEEKS, SUBCUTANEOUS
     Route: 058
     Dates: start: 20070126
  2. ANTIDEPRESSANTS (ANTIDEPRESSANTS) [Concomitant]
  3. NEURONTIN [Concomitant]
  4. POTASSIUM (POTASSIUM) [Concomitant]
  5. HYDROCHLOROTHIAZIDE [Concomitant]
  6. OTHER UNSPECIFIED MEDICATIONS (ALL OTHER THERAPEUTIC PRODUCTS) [Concomitant]

REACTIONS (2)
  - FLUID RETENTION [None]
  - SECRETION DISCHARGE [None]
